FAERS Safety Report 10383248 (Version 1)
Quarter: 2014Q3

REPORT INFORMATION
  Report Type: Spontaneous
  Country: BR (occurrence: BR)
  Receive Date: 20140814
  Receipt Date: 20140814
  Transmission Date: 20150326
  Serious: Yes (Other)
  Sender: FDA-Public Use
  Company Number: PHHY2014BR096518

PATIENT
  Sex: Female
  Weight: 59.8 kg

DRUGS (5)
  1. OLCADIL [Concomitant]
     Active Substance: CLOXAZOLAM
     Indication: ANXIOLYTIC THERAPY
     Dosage: 1 MG, QD
  2. MIRTAZAPINE. [Suspect]
     Active Substance: MIRTAZAPINE
     Indication: DEPRESSION
     Dosage: 1 DF, QD
     Route: 048
  3. OLCADIL [Concomitant]
     Active Substance: CLOXAZOLAM
     Indication: EMOTIONAL DISORDER
  4. CRESTOR [Concomitant]
     Active Substance: ROSUVASTATIN CALCIUM
     Indication: BLOOD CHOLESTEROL
     Dosage: 10 MG, QD
  5. APROZIDE [Concomitant]
     Active Substance: HYDROCHLOROTHIAZIDE\IRBESARTAN
     Indication: HYPERTENSION
     Dosage: 150 MG, QD

REACTIONS (4)
  - Dyspepsia [Recovered/Resolved]
  - Dysgeusia [Recovered/Resolved]
  - Malaise [Recovered/Resolved]
  - Abdominal pain upper [Recovered/Resolved]
